FAERS Safety Report 5475138-0 (Version None)
Quarter: 2007Q4

REPORT INFORMATION
  Report Type: 
  Country: None (occurrence: None)
  Receive Date: 20071002
  Receipt Date: 20070927
  Transmission Date: 20080405
  Serious: Yes (Hospitalization)
  Sender: FDA-Public Use
  Company Number: MX-ALLERGAN-0710641US

PATIENT
  Sex: Male
  Weight: 10.8 kg

DRUGS (1)
  1. BRIMONIDINE UNK [Suspect]
     Indication: ACCIDENTAL EXPOSURE
     Dosage: 3 MG, SINGLE
     Route: 048

REACTIONS (8)
  - ACCIDENTAL EXPOSURE [None]
  - APNOEA [None]
  - BRADYCARDIA [None]
  - HYPOVENTILATION [None]
  - LETHARGY [None]
  - MUCOUS MEMBRANE DISORDER [None]
  - PALLOR [None]
  - UNRESPONSIVE TO STIMULI [None]
